FAERS Safety Report 11339731 (Version 1)
Quarter: 2015Q3

REPORT INFORMATION
  Report Type: Spontaneous
  Country: US (occurrence: None)
  Receive Date: 20150803
  Receipt Date: 20150803
  Transmission Date: 20151125
  Serious: Yes (Death)
  Sender: FDA-Public Use
  Company Number: None

PATIENT
  Age: 66 Year
  Sex: Female

DRUGS (1)
  1. PEG [Suspect]
     Active Substance: POLYETHYLENE GLYCOLS
     Indication: COLONOSCOPY

REACTIONS (5)
  - Brain death [None]
  - Iatrogenic injury [None]
  - Product use issue [None]
  - Aspiration [None]
  - Traumatic lung injury [None]

NARRATIVE: CASE EVENT DATE: 20110707
